FAERS Safety Report 5343842-0 (Version None)
Quarter: 2007Q2

REPORT INFORMATION
  Report Type: 
  Country: None (occurrence: None)
  Receive Date: 20070531
  Receipt Date: 20070523
  Transmission Date: 20071010
  Serious: Yes (Life-Threatening, Hospitalization, Other)
  Sender: FDA-Public Use
  Company Number: 233982K07USA

PATIENT
  Age: 64 Year
  Sex: Male

DRUGS (6)
  1. REBIF [Suspect]
     Indication: MULTIPLE SCLEROSIS
     Dosage: SEE IMAGE; SUBCUTANEOUS
     Route: 058
     Dates: start: 20021114, end: 20060301
  2. REBIF [Suspect]
     Indication: MULTIPLE SCLEROSIS
     Dosage: SEE IMAGE; SUBCUTANEOUS
     Route: 058
     Dates: start: 20060101
  3. TOPROL-XL [Concomitant]
  4. FLOMAX (MORNIFLUMATE) [Concomitant]
  5. ZOCOR (ZOCOR CARDIO ASS) [Concomitant]
  6. SPIRONOLACTONE [Concomitant]

REACTIONS (1)
  - OESOPHAGEAL CARCINOMA [None]
